FAERS Safety Report 23569995 (Version 1)
Quarter: 2024Q1

REPORT INFORMATION
  Report Type: Spontaneous
  Country: US (occurrence: US)
  Receive Date: 20240227
  Receipt Date: 20240227
  Transmission Date: 20240409
  Serious: Yes (Other)
  Sender: FDA-Public Use
  Company Number: US-MYLANLABS-2024M1017705

PATIENT
  Age: 63 Year
  Sex: Male

DRUGS (7)
  1. CARVEDILOL [Interacting]
     Active Substance: CARVEDILOL
     Indication: Left ventricular failure
     Dosage: 50 MILLIGRAM, BID
     Route: 065
  2. CARVEDILOL [Interacting]
     Active Substance: CARVEDILOL
     Dosage: 25 MILLIGRAM, BID, DOSE REDUCED
     Route: 065
  3. SPIRONOLACTONE [Interacting]
     Active Substance: SPIRONOLACTONE
     Indication: Left ventricular failure
     Dosage: 25 MILLIGRAM, QD
     Route: 065
  4. SACUBITRIL\VALSARTAN [Interacting]
     Active Substance: SACUBITRIL\VALSARTAN
     Indication: Left ventricular failure
     Dosage: UNK UNK, BID
     Route: 065
  5. SACUBITRIL\VALSARTAN [Interacting]
     Active Substance: SACUBITRIL\VALSARTAN
     Dosage: UNK, DOSE REDUCED
     Route: 065
  6. TIRZEPATIDE [Interacting]
     Active Substance: TIRZEPATIDE
     Indication: Type 2 diabetes mellitus
     Dosage: 2.5 MILLIGRAM, QW,GRADUALLY TITRATED TO 12.5MG ONCE WEEKLY
     Route: 065
  7. TIRZEPATIDE [Interacting]
     Active Substance: TIRZEPATIDE
     Dosage: 12.5 MILLIGRAM, QW
     Route: 065

REACTIONS (5)
  - Drug interaction [Recovered/Resolved]
  - Hypotension [Recovered/Resolved]
  - Presyncope [Unknown]
  - Orthostatic hypotension [Recovering/Resolving]
  - Renal ischaemia [Unknown]
